FAERS Safety Report 15928250 (Version 1)
Quarter: 2019Q1

REPORT INFORMATION
  Report Type: Report from Study
  Country: CA (occurrence: CA)
  Receive Date: 20190206
  Receipt Date: 20190206
  Transmission Date: 20190417
  Serious: Yes (Other)
  Sender: FDA-Public Use
  Company Number: CA-JNJFOC-20190137371

PATIENT
  Age: 62 Year
  Sex: Female

DRUGS (1)
  1. STELARA [Suspect]
     Active Substance: USTEKINUMAB
     Indication: PSORIASIS
     Dosage: STRENGTH = 45 MG
     Route: 058
     Dates: start: 20110923

REACTIONS (5)
  - Pneumonia [Recovered/Resolved]
  - Off label use [Unknown]
  - Pain [Recovering/Resolving]
  - Product use issue [Unknown]
  - Lung disorder [Unknown]

NARRATIVE: CASE EVENT DATE: 20110923
